FAERS Safety Report 19403909 (Version 1)
Quarter: 2021Q2

REPORT INFORMATION
  Report Type: Spontaneous
  Country: US (occurrence: US)
  Receive Date: 20210611
  Receipt Date: 20210611
  Transmission Date: 20210717
  Serious: No
  Sender: FDA-Public Use
  Company Number: None

PATIENT
  Age: 26 Year
  Sex: Female
  Weight: 60.75 kg

DRUGS (2)
  1. RITE AID CAPSICUM HOT [Suspect]
     Active Substance: CAPSAICIN
     Indication: BACK PAIN
     Dosage: ?          QUANTITY:1 PATCH(ES);?
     Route: 062
  2. RITE AID CAPSICUM HOT [Suspect]
     Active Substance: CAPSAICIN
     Indication: ARTHRALGIA
     Dosage: ?          QUANTITY:1 PATCH(ES);?
     Route: 062

REACTIONS (7)
  - Product storage error [None]
  - Application site pruritus [None]
  - Application site vesicles [None]
  - Application site irritation [None]
  - Application site warmth [None]
  - Application site erythema [None]
  - Application site exfoliation [None]

NARRATIVE: CASE EVENT DATE: 20210611
